FAERS Safety Report 17008632 (Version 1)
Quarter: 2019Q4

REPORT INFORMATION
  Report Type: Spontaneous
  Country: US (occurrence: US)
  Receive Date: 20191108
  Receipt Date: 20191108
  Transmission Date: 20200122
  Serious: No
  Sender: FDA-Public Use
  Company Number: US-TEVA-2019-US-1133870

PATIENT
  Sex: Male

DRUGS (2)
  1. WARFARIN SODIUM TABLETS 5 MG AND 2.5 MG [Suspect]
     Active Substance: WARFARIN SODIUM
     Indication: EMBOLISM
     Dosage: 3.5 YEARS
     Route: 065
     Dates: start: 201603
  2. WARFARIN SODIUM TABLETS 5 MG AND 2.5 MG [Suspect]
     Active Substance: WARFARIN SODIUM
     Dosage: 3.5 YEARS
     Route: 065
     Dates: start: 201603

REACTIONS (2)
  - International normalised ratio increased [Unknown]
  - Drug ineffective [Unknown]
